FAERS Safety Report 4501869-2 (Version None)
Quarter: 2004Q4

REPORT INFORMATION
  Report Type: 
  Country: None (occurrence: None)
  Receive Date: 20041115
  Receipt Date: 20041115
  Transmission Date: 20050328
  Serious: Yes (Other)
  Sender: FDA-Public Use
  Company Number: None

PATIENT
  Sex: Male
  Weight: 92.5338 kg

DRUGS (1)
  1. CLONIDINE [Suspect]
     Indication: HYPERTENSION
     Dosage: 1 PATCH Q WEEK TOPICAL
     Route: 061
     Dates: start: 20040224, end: 20040701

REACTIONS (2)
  - DERMATITIS ALLERGIC [None]
  - PRURITUS [None]
